FAERS Safety Report 25715607 (Version 3)
Quarter: 2025Q4

REPORT INFORMATION
  Report Type: Report from Study
  Country: EU (occurrence: EU)
  Receive Date: 20250822
  Receipt Date: 20251006
  Transmission Date: 20260117
  Serious: Yes (Death, Life-Threatening, Hospitalization, Other)
  Sender: SAREPTA THERAPEUTICS
  Company Number: EU-SAREPTA THERAPEUTICS INC.-SRP2025-006250

PATIENT

DRUGS (3)
  1. ETEPLIRSEN [Suspect]
     Active Substance: ETEPLIRSEN
     Indication: Duchenne muscular dystrophy
     Dosage: UNK,30 MG/KG/DIE, WEEKLY
     Route: 042
     Dates: start: 201708, end: 20250701
  2. DEFLAZACORT [Concomitant]
     Active Substance: DEFLAZACORT
     Indication: Duchenne muscular dystrophy
     Dosage: 24 MILLIGRAM, QD
     Dates: start: 201505
  3. CHOLECALCIFEROL [Concomitant]
     Active Substance: CHOLECALCIFEROL
     Indication: Osteoporosis
     Dosage: 2000 INTERNATIONAL UNIT, QD
     Dates: start: 201505

REACTIONS (2)
  - Septic shock [Fatal]
  - Vasoplegia syndrome [Unknown]

NARRATIVE: CASE EVENT DATE: 20250703
